FAERS Safety Report 15625005 (Version 6)
Quarter: 2018Q4

REPORT INFORMATION
  Report Type: Report from Study
  Country: US (occurrence: US)
  Receive Date: 20181116
  Receipt Date: 20181225
  Transmission Date: 20190205
  Serious: Yes (Life-Threatening, Hospitalization, Disabling, Other)
  Sender: FDA-Public Use
  Company Number: PHEH2018US048084

PATIENT
  Age: 16 Year
  Sex: Male
  Weight: 76.4 kg

DRUGS (9)
  1. IBUPROFEN. [Suspect]
     Active Substance: IBUPROFEN
     Indication: PYREXIA
  2. LEFLUNOMIDE. [Suspect]
     Active Substance: LEFLUNOMIDE
     Indication: STILL^S DISEASE
  3. PREDNISONE. [Concomitant]
     Active Substance: PREDNISONE
     Indication: STILL^S DISEASE
     Dosage: UNK
     Route: 065
     Dates: start: 201609
  4. ILARIS [Suspect]
     Active Substance: CANAKINUMAB
     Indication: STILL^S DISEASE
     Dosage: 300 MG, QMO
     Route: 058
     Dates: start: 201707
  5. METHOTREXATE SODIUM. [Suspect]
     Active Substance: METHOTREXATE SODIUM
     Indication: STILL^S DISEASE
     Dosage: 20 MG, QW
     Route: 058
     Dates: start: 20160926
  6. IBUPROFEN. [Suspect]
     Active Substance: IBUPROFEN
     Indication: STILL^S DISEASE
     Dosage: 400 MG, Q8H
     Route: 048
     Dates: start: 20180914, end: 20180916
  7. LEFLUNOMIDE. [Suspect]
     Active Substance: LEFLUNOMIDE
     Indication: ARTHRITIS
     Dosage: 10 MG, QD
     Route: 048
     Dates: start: 20180312
  8. IMIPRAMINE [Concomitant]
     Active Substance: IMIPRAMINE
     Indication: DEPRESSION
     Dosage: 50 MG, QD
     Route: 048
     Dates: end: 20180915
  9. IBUPROFEN. [Suspect]
     Active Substance: IBUPROFEN
     Indication: ABDOMINAL PAIN

REACTIONS (18)
  - Septic shock [Recovered/Resolved]
  - Abdominal abscess [Recovering/Resolving]
  - Duodenal ulcer [Recovering/Resolving]
  - Peritonitis [Recovering/Resolving]
  - Peritoneal abscess [Recovering/Resolving]
  - Haemophagocytic lymphohistiocytosis [Recovering/Resolving]
  - Abdominal pain [Unknown]
  - Malaise [Unknown]
  - Acute pulmonary histoplasmosis [Recovering/Resolving]
  - Pancytopenia [Unknown]
  - Pneumonitis [Unknown]
  - Coagulopathy [Unknown]
  - Musculoskeletal pain [Unknown]
  - Pyrexia [Unknown]
  - Acute abdomen [Unknown]
  - Cough [Unknown]
  - Duodenal perforation [Recovering/Resolving]
  - Hypotension [Unknown]

NARRATIVE: CASE EVENT DATE: 201809
